FAERS Safety Report 8524435-0 (Version None)
Quarter: 2012Q3

REPORT INFORMATION
  Report Type: 
  Country: None (occurrence: None)
  Receive Date: 20120720
  Receipt Date: 20111115
  Transmission Date: 20120928
  Serious: No
  Sender: FDA-Public Use
  Company Number: US-MYLANLABS-2011S1023692

PATIENT
  Age: 68 Year
  Sex: Female

DRUGS (4)
  1. LORATADINE [Concomitant]
  2. ATENOLOL [Concomitant]
  3. CIPROFLOXACIN [Suspect]
     Route: 048
     Dates: start: 20110201, end: 20110201
  4. LEVOTHYROXINE SODIUM [Concomitant]

REACTIONS (2)
  - ERYTHEMA [None]
  - SWELLING FACE [None]
